FAERS Safety Report 13255546 (Version 2)
Quarter: 2017Q1

REPORT INFORMATION
  Report Type: Report from Study
  Country: PA (occurrence: PA)
  Receive Date: 20170221
  Receipt Date: 20170308
  Transmission Date: 20170428
  Serious: Yes (Other)
  Sender: FDA-Public Use
  Company Number: PHHY2017PA006264

PATIENT
  Sex: Female
  Weight: 65.76 kg

DRUGS (10)
  1. RIVOTRIL [Concomitant]
     Active Substance: CLONAZEPAM
     Indication: PRODUCT USED FOR UNKNOWN INDICATION
     Route: 065
  2. VITAMIIN C [Concomitant]
     Active Substance: ASCORBIC ACID
     Indication: PRODUCT USED FOR UNKNOWN INDICATION
     Route: 065
  3. KETAMINE [Concomitant]
     Active Substance: KETAMINE
     Indication: PRODUCT USED FOR UNKNOWN INDICATION
     Route: 065
  4. GILENYA [Suspect]
     Active Substance: FINGOLIMOD HYDROCHLORIDE
     Dosage: 0.5 MG, QD
     Route: 065
  5. TONALGEN [Concomitant]
     Indication: PRODUCT USED FOR UNKNOWN INDICATION
     Route: 065
  6. GILENYA [Suspect]
     Active Substance: FINGOLIMOD HYDROCHLORIDE
     Dosage: 0.5 MG, QOD
     Route: 065
  7. GABAPENTIN. [Concomitant]
     Active Substance: GABAPENTIN
     Indication: PRODUCT USED FOR UNKNOWN INDICATION
     Route: 065
  8. LISINOPRIL. [Concomitant]
     Active Substance: LISINOPRIL
     Indication: PRODUCT USED FOR UNKNOWN INDICATION
     Route: 065
  9. GILENYA [Suspect]
     Active Substance: FINGOLIMOD HYDROCHLORIDE
     Indication: MULTIPLE SCLEROSIS
     Dosage: 0.5 MG, QD
     Route: 065
  10. ESCITALOPRAM [Concomitant]
     Active Substance: ESCITALOPRAM OXALATE
     Indication: PRODUCT USED FOR UNKNOWN INDICATION
     Route: 065

REACTIONS (28)
  - Muscular weakness [Unknown]
  - Pain [Recovering/Resolving]
  - Chest pain [Unknown]
  - Influenza [Recovered/Resolved]
  - Pyrexia [Unknown]
  - Fatigue [Unknown]
  - Peripheral venous disease [Unknown]
  - Oedema [Unknown]
  - Hypertension [Unknown]
  - Multiple sclerosis relapse [Unknown]
  - Multiple sclerosis [Unknown]
  - Decreased immune responsiveness [Unknown]
  - Malaise [Unknown]
  - Balance disorder [Unknown]
  - Bradycardia [Unknown]
  - Anaemia [Unknown]
  - Hypoaesthesia [Unknown]
  - Cough [Unknown]
  - Prescribed underdose [Unknown]
  - Central nervous system lesion [Unknown]
  - Fibromyalgia [Recovering/Resolving]
  - Influenza [Unknown]
  - Headache [Unknown]
  - Skin ulcer [Unknown]
  - Irritable bowel syndrome [Unknown]
  - Nasopharyngitis [Unknown]
  - Viral pharyngitis [Recovered/Resolved]
  - Chills [Recovered/Resolved]
